FAERS Safety Report 13720784 (Version 1)
Quarter: 2017Q3

REPORT INFORMATION
  Report Type: Report from Study
  Country: None (occurrence: BE)
  Receive Date: 20170706
  Receipt Date: 20170706
  Transmission Date: 20171127
  Serious: Yes (Hospitalization, Other)
  Sender: FDA-Public Use
  Company Number: BE-ABBVIE-17K-013-2001232-00

PATIENT
  Age: 68 Year
  Sex: Male

DRUGS (3)
  1. DUODOPA [Suspect]
     Active Substance: CARBIDOPA\LEVODOPA
     Dosage: MD= 3 ML; CD= 5 ML/H DURING 16 HRS; EDA=3ML; ND= 3.5 ML/H DURING 8 HRS
     Route: 050
     Dates: start: 20170118
  2. DUODOPA [Suspect]
     Active Substance: CARBIDOPA\LEVODOPA
     Indication: PARKINSON^S DISEASE
     Dosage: MD= 8 ML; CD= 3.3 ML/H DURING 16 HRS; EDA= 1.5 ML
     Route: 050
     Dates: start: 20130402, end: 20140616
  3. DUODOPA [Suspect]
     Active Substance: CARBIDOPA\LEVODOPA
     Dosage: DOSES CONTINUOUSLY MONITORED AND ADAPTED
     Route: 050
     Dates: start: 20140616, end: 20170118

REACTIONS (5)
  - Umbilical hernia [Recovered/Resolved]
  - Stoma site infection [Unknown]
  - Ileus [Unknown]
  - Device dislocation [Recovered/Resolved]
  - Embedded device [Recovered/Resolved]

NARRATIVE: CASE EVENT DATE: 20170619
